FAERS Safety Report 4448220-4 (Version None)
Quarter: 2004Q3

REPORT INFORMATION
  Report Type: 
  Country: None (occurrence: None)
  Receive Date: 20040913
  Receipt Date: 20040823
  Transmission Date: 20050211
  Serious: Yes (Other)
  Sender: FDA-Public Use
  Company Number: PHBS2004CA11183

PATIENT
  Age: 34 Year
  Sex: Male
  Weight: 100 kg

DRUGS (2)
  1. GLEEVEC [Suspect]
     Indication: CHRONIC MYELOID LEUKAEMIA
     Dosage: 400 MG/DAY
     Route: 048
     Dates: start: 20030601, end: 20040801
  2. GLUCOSAMINE [Concomitant]
     Dosage: 1 G/DAY
     Dates: start: 20040601

REACTIONS (5)
  - AMNESIA [None]
  - ARTHRALGIA [None]
  - ASTHENIA [None]
  - FATIGUE [None]
  - RETINAL DETACHMENT [None]
